FAERS Safety Report 7570180-8 (Version None)
Quarter: 2011Q2

REPORT INFORMATION
  Report Type: 
  Country: None (occurrence: None)
  Receive Date: 20110622
  Receipt Date: 20110622
  Transmission Date: 20111010
  Serious: Yes (Other)
  Sender: FDA-Public Use
  Company Number: None

PATIENT
  Sex: Female
  Weight: 58.9676 kg

DRUGS (1)
  1. AVELOX [Suspect]
     Indication: UPPER RESPIRATORY TRACT INFECTION
     Dosage: 400MG ONE PO QD PO
     Route: 048
     Dates: start: 20110525, end: 20110528

REACTIONS (12)
  - NEUROPATHY PERIPHERAL [None]
  - NIGHTMARE [None]
  - ASTHENIA [None]
  - NAUSEA [None]
  - HALLUCINATION, VISUAL [None]
  - RESTLESSNESS [None]
  - TREMOR [None]
  - DIZZINESS [None]
  - HALLUCINATION, AUDITORY [None]
  - CONFUSIONAL STATE [None]
  - INSOMNIA [None]
  - HYPOAESTHESIA [None]
